FAERS Safety Report 4802292-3 (Version None)
Quarter: 2005Q4

REPORT INFORMATION
  Report Type: 
  Country: None (occurrence: None)
  Receive Date: 20051012
  Receipt Date: 20051009
  Transmission Date: 20060501
  Serious: Yes (Death)
  Sender: FDA-Public Use
  Company Number: USA-2002-0001741

PATIENT
  Age: 48 Year
  Sex: Female
  Weight: 67.6 kg

DRUGS (3)
  1. OXYCONTIN [Suspect]
     Indication: PAIN
     Dates: end: 20020412
  2. ETHANOL (ETHANOL) [Suspect]
     Dosage: ORAL
     Route: 048
     Dates: end: 20020412
  3. PROPOXYPHENE (DEXTROPROPOXYPHENE) TABLET [Suspect]
     Dosage: ORAL
     Route: 048
     Dates: end: 20020412

REACTIONS (6)
  - ACCIDENTAL DEATH [None]
  - ALCOHOL USE [None]
  - DRUG TOXICITY [None]
  - LOSS OF CONSCIOUSNESS [None]
  - MULTIPLE DRUG OVERDOSE [None]
  - VOMITING [None]
